FAERS Safety Report 21050998 (Version 1)
Quarter: 2022Q3

REPORT INFORMATION
  Report Type: Spontaneous
  Country: US (occurrence: US)
  Receive Date: 20220707
  Receipt Date: 20220707
  Transmission Date: 20221026
  Serious: No
  Sender: FDA-Public Use
  Company Number: US-AMGEN-USASP2022113842

PATIENT
  Age: 15 Year
  Sex: Female

DRUGS (2)
  1. RITUXIMAB [Suspect]
     Active Substance: RITUXIMAB
     Indication: Thrombotic thrombocytopenic purpura
     Dosage: 375 MILLIGRAM/METERS SQURE FOR FOUR WEEKS
     Route: 065
  2. METHYLPREDNISOLONE [Concomitant]
     Active Substance: METHYLPREDNISOLONE
     Indication: Thrombotic thrombocytopenic purpura
     Dosage: 1 GRAM, DAILY FOR 3 DAYS FOLLOWED BY TAPER
     Route: 065

REACTIONS (3)
  - Herpes zoster [Unknown]
  - Weight increased [Unknown]
  - Off label use [Unknown]
